FAERS Safety Report 6817813-9 (Version None)
Quarter: 2010Q3

REPORT INFORMATION
  Report Type: 
  Country: None (occurrence: None)
  Receive Date: 20100706
  Receipt Date: 20100623
  Transmission Date: 20110219
  Serious: Yes (Hospitalization)
  Sender: FDA-Public Use
  Company Number: DE-ELI_LILLY_AND_COMPANY-DE201005001551

PATIENT
  Sex: Male
  Weight: 76 kg

DRUGS (5)
  1. FORTEO [Suspect]
     Indication: OSTEOPOROSIS
     Dosage: 20 UG, DAILY (1/D)
     Route: 058
     Dates: start: 20090301
  2. MTX [Concomitant]
     Indication: VASCULITIS
     Dosage: 15 MG, WEEKLY (1/W)
     Route: 048
     Dates: start: 20090301
  3. MABTHERA [Concomitant]
     Indication: VASCULITIS
     Dosage: 1000 MG, UNK
     Route: 042
     Dates: start: 20090301
  4. MABTHERA [Concomitant]
     Dosage: 1000 MG, UNK
     Route: 042
     Dates: start: 20090301
  5. DECORTIN [Concomitant]
     Indication: VASCULITIS
     Dosage: 5 MG, UNK
     Route: 048
     Dates: start: 20090301

REACTIONS (2)
  - BRONCHIAL CARCINOMA [None]
  - DRUG EFFECT DECREASED [None]
